FAERS Safety Report 6818613-6 (Version None)
Quarter: 2010Q2

REPORT INFORMATION
  Report Type: 
  Country: None (occurrence: None)
  Receive Date: 20100630
  Receipt Date: 20100621
  Transmission Date: 20101027
  Serious: Yes (Life-Threatening, Hospitalization)
  Sender: FDA-Public Use
  Company Number: 378298

PATIENT
  Age: 79 Year
  Sex: Male

DRUGS (5)
  1. GENTAMICIN [Suspect]
     Indication: PROPHYLAXIS
     Dosage: 200 MG, UNKNOWN, INTRAVENOUS
     Route: 042
     Dates: start: 20090826
  2. LISINOPRIL [Concomitant]
  3. (BENDROFLUAZIDE) [Concomitant]
  4. ACETAMINOPHEN [Concomitant]
  5. (ASPIRIN) [Concomitant]

REACTIONS (1)
  - RENAL FAILURE [None]
